FAERS Safety Report 7205179-4 (Version None)
Quarter: 2010Q4

REPORT INFORMATION
  Report Type: 
  Country: None (occurrence: None)
  Receive Date: 20101231
  Receipt Date: 20101223
  Transmission Date: 20110411
  Serious: Yes (Other)
  Sender: FDA-Public Use
  Company Number: US-BIOGENIDEC-2010BI042879

PATIENT
  Age: 43 Year
  Sex: Female
  Weight: 111 kg

DRUGS (3)
  1. AVONEX [Suspect]
     Indication: MULTIPLE SCLEROSIS
     Route: 030
     Dates: start: 20020719
  2. AVONEX [Suspect]
     Route: 030
     Dates: end: 20061231
  3. DILANTIN [Concomitant]
     Indication: CONVULSION
     Dates: start: 19960101, end: 20090101

REACTIONS (2)
  - BREAST CANCER [None]
  - INSOMNIA [None]
